FAERS Safety Report 25067914 (Version 1)
Quarter: 2025Q1

REPORT INFORMATION
  Report Type: Spontaneous
  Country: IT (occurrence: IT)
  Receive Date: 20250312
  Receipt Date: 20250312
  Transmission Date: 20250409
  Serious: Yes (Hospitalization)
  Sender: AUROBINDO
  Company Number: IT-DOCGEN-2407747

PATIENT
  Age: 25 Year
  Sex: Female

DRUGS (8)
  1. SERTRALINE [Suspect]
     Active Substance: SERTRALINE HYDROCHLORIDE
     Indication: Psychotic behaviour
     Route: 065
     Dates: start: 2024, end: 2024
  2. SERTRALINE [Suspect]
     Active Substance: SERTRALINE HYDROCHLORIDE
     Indication: Hallucination, auditory
  3. RISPERIDONE [Suspect]
     Active Substance: RISPERIDONE
     Indication: Psychotic behaviour
     Route: 065
     Dates: start: 2024, end: 2024
  4. RISPERIDONE [Suspect]
     Active Substance: RISPERIDONE
     Route: 065
     Dates: start: 2024, end: 2024
  5. TOPIRAMATE [Concomitant]
     Active Substance: TOPIRAMATE
     Indication: Epilepsy
     Dosage: 200 MILLIGRAM, ONCE A DAY
     Route: 065
  6. CLONAZEPAM [Concomitant]
     Active Substance: CLONAZEPAM
     Indication: Epilepsy
     Dosage: 5 GTT DROPS, ONCE A DAY
     Route: 065
  7. LURASIDONE [Concomitant]
     Active Substance: LURASIDONE
     Indication: Epilepsy
     Dosage: 74 MILLIGRAM, ONCE A DAY
     Route: 065
  8. LURASIDONE [Concomitant]
     Active Substance: LURASIDONE
     Dosage: 148 MILLIGRAM, ONCE A DAY
     Route: 065

REACTIONS (3)
  - Therapy partial responder [Recovered/Resolved]
  - Condition aggravated [Recovering/Resolving]
  - Abnormal behaviour [Recovering/Resolving]
